FAERS Safety Report 7920735-3 (Version None)
Quarter: 2011Q4

REPORT INFORMATION
  Report Type: 
  Country: None (occurrence: None)
  Receive Date: 20111117
  Receipt Date: 20111104
  Transmission Date: 20120403
  Serious: Yes (Other)
  Sender: FDA-Public Use
  Company Number: DE-ROCHE-1006768

PATIENT
  Age: 63 Year
  Sex: Female

DRUGS (9)
  1. RITUXIMAB [Suspect]
     Indication: CHRONIC LYMPHOCYTIC LEUKAEMIA
     Route: 042
  2. RANITIC [Concomitant]
  3. GRANISETRON [Concomitant]
     Route: 042
  4. DEXAMETHASON [Concomitant]
     Route: 042
  5. PANTOPRAZOLE SODIUM [Concomitant]
     Route: 048
  6. ACETAMINOPHEN [Concomitant]
     Route: 048
  7. CLEMASTINE FUMARATE [Concomitant]
  8. PREDNISONE TAB [Concomitant]
     Route: 048
  9. BENDAMUSTINE [Suspect]
     Indication: CHRONIC LYMPHOCYTIC LEUKAEMIA
     Route: 042

REACTIONS (5)
  - METASTASES TO SOFT TISSUE [None]
  - BRONCHIAL CARCINOMA [None]
  - TUBERCULOSIS [None]
  - METASTASES TO CENTRAL NERVOUS SYSTEM [None]
  - METASTASES TO LIVER [None]
